FAERS Safety Report 4635744-X (Version None)
Quarter: 2005Q2

REPORT INFORMATION
  Report Type: 
  Country: None (occurrence: None)
  Receive Date: 20050413
  Receipt Date: 20050331
  Transmission Date: 20051028
  Serious: Yes (Other)
  Sender: FDA-Public Use
  Company Number: 2005047987

PATIENT
  Age: 73 Year
  Sex: Female
  Weight: 70.3075 kg

DRUGS (8)
  1. ALPRAZOLAM [Suspect]
     Indication: SLEEP DISORDER
     Dosage: 0.5 MG (0.5 MG, 1 IN 1 D), ORAL
     Route: 048
  2. METRONIDAZOLE [Suspect]
     Indication: ILL-DEFINED DISORDER
     Dates: start: 19970101, end: 19970101
  3. BEXTRA [Suspect]
     Indication: OSTEOARTHRITIS
     Dosage: 10 MG (10 MG, 1 IN 1 D), ORAL
     Route: 048
     Dates: start: 20050101
  4. ALENDRONATE SODIUM [Concomitant]
  5. TRIAMTERENE (TRIAMTERENE) [Concomitant]
  6. FENOFIBRATE [Concomitant]
  7. ROSUVASTATIN (ROSUVASTATIN) [Concomitant]
  8. LEVOTHYROXINE SODIUM [Concomitant]

REACTIONS (8)
  - DEPENDENCE [None]
  - HYPERSENSITIVITY [None]
  - NAUSEA [None]
  - ORAL MUCOSAL BLISTERING [None]
  - PAIN [None]
  - SPINAL OSTEOARTHRITIS [None]
  - VIRAL INFECTION [None]
  - VOMITING [None]
